FAERS Safety Report 12348187 (Version 2)
Quarter: 2016Q3

REPORT INFORMATION
  Report Type: Spontaneous
  Country: US (occurrence: US)
  Receive Date: 20160509
  Receipt Date: 20160825
  Transmission Date: 20161109
  Serious: Yes (Other)
  Sender: FDA-Public Use
  Company Number: US-PURDUE-USA-2016-0130741

PATIENT
  Sex: Female

DRUGS (1)
  1. OXYCONTIN [Suspect]
     Active Substance: OXYCODONE HYDROCHLORIDE
     Indication: BACK PAIN
     Dosage: UNK, Q12H
     Route: 048
     Dates: start: 1996

REACTIONS (6)
  - Drug dependence [Unknown]
  - Nausea [Unknown]
  - Drug withdrawal syndrome [Unknown]
  - Drug effect decreased [Unknown]
  - Self-injurious ideation [Unknown]
  - Pain [Unknown]
